FAERS Safety Report 20669917 (Version 3)
Quarter: 2023Q2

REPORT INFORMATION
  Report Type: Spontaneous
  Country: FR (occurrence: FR)
  Receive Date: 20220404
  Receipt Date: 20230519
  Transmission Date: 20230722
  Serious: Yes (Other)
  Sender: FDA-Public Use
  Company Number: FR-PFIZER INC-202200504330

PATIENT
  Age: 56 Year
  Sex: Male
  Weight: 68 kg

DRUGS (2)
  1. PAXLOVID [Suspect]
     Active Substance: NIRMATRELVIR\RITONAVIR
     Indication: COVID-19 treatment
     Dosage: [PF-07321332 300 MG]/[RITONAVIR 100 MG]; 2X/DAY
     Dates: start: 20220330
  2. VENETOCLAX [Concomitant]
     Active Substance: VENETOCLAX
     Indication: Lymphocytic lymphoma
     Dosage: STOPPED 5 DAYS BEFORE ADMINISTARTION OF PAXLOVID

REACTIONS (3)
  - Rectal haemorrhage [Not Recovered/Not Resolved]
  - Proctitis [Not Recovered/Not Resolved]
  - Diarrhoea [Not Recovered/Not Resolved]

NARRATIVE: CASE EVENT DATE: 20220331
